FAERS Safety Report 16926959 (Version 1)
Quarter: 2019Q4

REPORT INFORMATION
  Report Type: Spontaneous
  Country: ES (occurrence: ES)
  Receive Date: 20191016
  Receipt Date: 20191016
  Transmission Date: 20200122
  Serious: Yes (Death)
  Sender: FDA-Public Use
  Company Number: ES-BAUSCH-BL-2019-057128

PATIENT
  Age: 49 Year
  Sex: Female

DRUGS (19)
  1. CYCLOPHOSPHAMIDE. [Suspect]
     Active Substance: CYCLOPHOSPHAMIDE
     Indication: PLASMA CELL LEUKAEMIA
     Route: 065
     Dates: start: 20190802
  2. CARFILZOMIB [Suspect]
     Active Substance: CARFILZOMIB
     Indication: PLASMA CELL LEUKAEMIA
     Route: 065
     Dates: start: 201908
  3. DARZALEX [Suspect]
     Active Substance: DARATUMUMAB
     Indication: PLASMA CELL LEUKAEMIA
     Route: 065
     Dates: start: 201908
  4. VELCADE [Suspect]
     Active Substance: BORTEZOMIB
     Indication: PRODUCT USE IN UNAPPROVED INDICATION
  5. CISPLATIN. [Suspect]
     Active Substance: CISPLATIN
     Indication: PRODUCT USE IN UNAPPROVED INDICATION
  6. DEXAMETHASONE. [Suspect]
     Active Substance: DEXAMETHASONE
     Route: 065
     Dates: start: 20190802
  7. ETOPOSIDE. [Suspect]
     Active Substance: ETOPOSIDE
     Indication: PLASMA CELL LEUKAEMIA
     Route: 065
     Dates: start: 20190802
  8. LENALIDOMIDE [Suspect]
     Active Substance: LENALIDOMIDE
     Indication: PRODUCT USE IN UNAPPROVED INDICATION
  9. CISPLATIN. [Suspect]
     Active Substance: CISPLATIN
     Indication: PLASMA CELL LEUKAEMIA
     Route: 065
     Dates: start: 20190802
  10. CARFILZOMIB [Suspect]
     Active Substance: CARFILZOMIB
     Indication: PRODUCT USE IN UNAPPROVED INDICATION
  11. CYCLOPHOSPHAMIDE. [Suspect]
     Active Substance: CYCLOPHOSPHAMIDE
     Indication: PRODUCT USE IN UNAPPROVED INDICATION
  12. VELCADE [Suspect]
     Active Substance: BORTEZOMIB
     Indication: PLASMA CELL LEUKAEMIA
     Route: 065
     Dates: start: 20190612
  13. CAELYX [Suspect]
     Active Substance: DOXORUBICIN HYDROCHLORIDE
     Indication: PRODUCT USE IN UNAPPROVED INDICATION
  14. DEXAMETHASONE. [Suspect]
     Active Substance: DEXAMETHASONE
     Indication: PLASMA CELL LEUKAEMIA
     Route: 065
     Dates: start: 201908
  15. DEXAMETHASONE. [Suspect]
     Active Substance: DEXAMETHASONE
     Indication: PRODUCT USE IN UNAPPROVED INDICATION
     Route: 065
     Dates: start: 20190612
  16. ETOPOSIDE. [Suspect]
     Active Substance: ETOPOSIDE
     Indication: PRODUCT USE IN UNAPPROVED INDICATION
  17. DARZALEX [Suspect]
     Active Substance: DARATUMUMAB
     Indication: PRODUCT USE IN UNAPPROVED INDICATION
  18. LENALIDOMIDE [Suspect]
     Active Substance: LENALIDOMIDE
     Indication: PLASMA CELL LEUKAEMIA
     Route: 065
     Dates: start: 20190612
  19. CAELYX [Suspect]
     Active Substance: DOXORUBICIN HYDROCHLORIDE
     Indication: PLASMA CELL LEUKAEMIA
     Route: 065
     Dates: start: 20190802

REACTIONS (5)
  - Product use in unapproved indication [Unknown]
  - Plasma cell leukaemia [Fatal]
  - Cerebellar haemangioma [Fatal]
  - Brain oedema [Fatal]
  - Off label use [Unknown]

NARRATIVE: CASE EVENT DATE: 20190612
